FAERS Safety Report 21733450 (Version 1)
Quarter: 2022Q4

REPORT INFORMATION
  Report Type: Spontaneous
  Country: US (occurrence: None)
  Receive Date: 20221214
  Receipt Date: 20221214
  Transmission Date: 20230112
  Serious: Yes (Other)
  Sender: FDA-Public Use
  Company Number: None

PATIENT
  Age: 50 Year
  Sex: Female

DRUGS (1)
  1. MOUNJARO [Suspect]
     Active Substance: TIRZEPATIDE
     Dosage: OTHER FREQUENCY : ONCE WEEKLY;?OTHER ROUTE : INJECTION;?
     Route: 050

REACTIONS (3)
  - Lip dry [None]
  - Chapped lips [None]
  - Lip ulceration [None]
